FAERS Safety Report 5071854-3 (Version None)
Quarter: 2006Q3

REPORT INFORMATION
  Report Type: 
  Country: None (occurrence: None)
  Receive Date: 20060801
  Receipt Date: 20060713
  Transmission Date: 20061208
  Serious: Yes (Hospitalization)
  Sender: FDA-Public Use
  Company Number: WAES 0604USA00468

PATIENT
  Age: 62 Year
  Sex: Male

DRUGS (2)
  1. HYDRODIURIL [Suspect]
     Dosage: PO
     Route: 048
     Dates: start: 20020717
  2. CAPTOPRIL [Suspect]
     Dosage: PO
     Route: 048
     Dates: start: 20020717

REACTIONS (2)
  - PITYRIASIS ROSEA [None]
  - THERAPY NON-RESPONDER [None]
